FAERS Safety Report 11009599 (Version 4)
Quarter: 2015Q2

REPORT INFORMATION
  Report Type: Report from Study
  Country: US (occurrence: US)
  Receive Date: 20150410
  Receipt Date: 20150605
  Transmission Date: 20150821
  Serious: Yes (Hospitalization)
  Sender: FDA-Public Use
  Company Number: US-SA-2015SA043679

PATIENT
  Age: 68 Year
  Sex: Male
  Weight: 65.8 kg

DRUGS (36)
  1. ACYCLOVIR. [Concomitant]
     Active Substance: ACYCLOVIR
  2. ZANTAC [Concomitant]
     Active Substance: RANITIDINE HYDROCHLORIDE
  3. DAPSONE. [Concomitant]
     Active Substance: DAPSONE
     Route: 048
     Dates: start: 20150310
  4. URSODIOL. [Concomitant]
     Active Substance: URSODIOL
  5. FLEXERIL [Concomitant]
     Active Substance: CYCLOBENZAPRINE HYDROCHLORIDE
     Indication: MUSCLE SPASMS
  6. LOMOTIL [Concomitant]
     Active Substance: ATROPINE SULFATE\DIPHENOXYLATE HYDROCHLORIDE
     Indication: DIARRHOEA
  7. CLOFARABINE [Suspect]
     Active Substance: CLOFARABINE
     Indication: STEM CELL TRANSPLANT
     Route: 042
     Dates: start: 20141215, end: 20141219
  8. NORCO [Concomitant]
     Active Substance: ACETAMINOPHEN\HYDROCODONE BITARTRATE
     Indication: PAIN
     Dosage: DOSE: 325-5 MG
  9. MORPHINE [Concomitant]
     Active Substance: MORPHINE
     Indication: PAIN
     Dosage: MORPHINE EXTENDED RELEASE 30 MG IN THE MORNING AND 15 MG IN THE EVENING
     Route: 048
     Dates: start: 20150331
  10. ATENOLOL. [Concomitant]
     Active Substance: ATENOLOL
  11. CLOFARABINE [Suspect]
     Active Substance: CLOFARABINE
     Indication: STEM CELL TRANSPLANT
     Route: 042
     Dates: start: 20141215, end: 20141219
  12. MELPHALAN [Suspect]
     Active Substance: MELPHALAN
     Indication: STEM CELL TRANSPLANT
     Route: 042
     Dates: start: 20141220, end: 20141220
  13. FOLIC ACID. [Concomitant]
     Active Substance: FOLIC ACID
     Route: 048
     Dates: start: 20150128
  14. POTASSIUM CHLORIDE. [Concomitant]
     Active Substance: POTASSIUM CHLORIDE
     Dosage: 30 MEQ IN THE MORNING AND 20 MEQ IN THE EVENING
  15. CLOFARABINE [Suspect]
     Active Substance: CLOFARABINE
     Indication: BONE MARROW CONDITIONING REGIMEN
     Route: 042
     Dates: start: 20141215, end: 20141219
  16. DIPHENOXYLATE/ATROPINE [Concomitant]
     Indication: DIARRHOEA
     Dosage: 0.025-2.5 MG: DOSE
     Route: 048
     Dates: start: 20150128
  17. ONDANSETRON [Concomitant]
     Active Substance: ONDANSETRON
  18. LORAZEPAM. [Concomitant]
     Active Substance: LORAZEPAM
     Indication: NAUSEA
     Dosage: AS NEEDED
     Route: 048
     Dates: start: 20150213
  19. LASIX [Concomitant]
     Active Substance: FUROSEMIDE
     Dosage: LASIX WITH POTASSIUM SUPPLEMENTS
  20. CELLCEPT [Concomitant]
     Active Substance: MYCOPHENOLATE MOFETIL\MYCOPHENOLATE MOFETIL HYDROCHLORIDE
  21. CLOFARABINE [Suspect]
     Active Substance: CLOFARABINE
     Indication: BONE MARROW CONDITIONING REGIMEN
     Route: 042
     Dates: start: 20141215, end: 20141219
  22. AMBIEN [Concomitant]
     Active Substance: ZOLPIDEM TARTRATE
     Indication: INSOMNIA
     Route: 048
     Dates: start: 20150227
  23. CARAFATE [Concomitant]
     Active Substance: SUCRALFATE
     Route: 048
     Dates: start: 20150317
  24. PREDNISONE. [Concomitant]
     Active Substance: PREDNISONE
     Dosage: 15 MG IN THE MORNING AND 15 MG IN THE EVENING
  25. CELEXA [Concomitant]
     Active Substance: CITALOPRAM HYDROBROMIDE
  26. CLOFARABINE [Suspect]
     Active Substance: CLOFARABINE
     Indication: STEM CELL TRANSPLANT
     Route: 042
     Dates: start: 20141215, end: 20141219
  27. CLOFARABINE [Suspect]
     Active Substance: CLOFARABINE
     Indication: BONE MARROW CONDITIONING REGIMEN
     Route: 042
     Dates: start: 20141215, end: 20141219
  28. VORICONAZOLE. [Concomitant]
     Active Substance: VORICONAZOLE
  29. CYCLOBENZAPRINE [Concomitant]
     Active Substance: CYCLOBENZAPRINE
     Indication: MUSCLE SPASMS
     Route: 048
     Dates: start: 20150306
  30. SIMETHICONE [Concomitant]
     Active Substance: DIMETHICONE\SILICON DIOXIDE\SIMETHICONE
  31. ATIVAN [Concomitant]
     Active Substance: LORAZEPAM
     Indication: NAUSEA
  32. LORAZEPAM. [Concomitant]
     Active Substance: LORAZEPAM
     Indication: ANXIETY
     Dosage: AS NEEDED
     Route: 048
     Dates: start: 20150213
  33. POSACONAZOLE [Concomitant]
     Active Substance: POSACONAZOLE
  34. ZOFRAN [Concomitant]
     Active Substance: ONDANSETRON HYDROCHLORIDE
     Indication: NAUSEA
  35. CITALOPRAM [Concomitant]
     Active Substance: CITALOPRAM HYDROBROMIDE
  36. PANTOPRAZOLE [Concomitant]
     Active Substance: PANTOPRAZOLE SODIUM

REACTIONS (12)
  - Vertigo [Not Recovered/Not Resolved]
  - Muscular weakness [Not Recovered/Not Resolved]
  - Fall [Not Recovered/Not Resolved]
  - Gait disturbance [Not Recovered/Not Resolved]
  - Asthenia [Unknown]
  - Spinal compression fracture [Not Recovered/Not Resolved]
  - Failure to thrive [Not Recovered/Not Resolved]
  - Myopathy [Recovered/Resolved]
  - Pain [Not Recovered/Not Resolved]
  - Presyncope [Unknown]
  - Back pain [Not Recovered/Not Resolved]
  - Decreased appetite [Recovered/Resolved]

NARRATIVE: CASE EVENT DATE: 201503
